FAERS Safety Report 24321051 (Version 2)
Quarter: 2024Q3

REPORT INFORMATION
  Report Type: Report from Study
  Country: CA (occurrence: CA)
  Receive Date: 20240915
  Receipt Date: 20240917
  Transmission Date: 20241017
  Serious: Yes (Other)
  Sender: BIOGEN
  Company Number: CA-BIOGEN-2024BI01282083

PATIENT
  Sex: Female

DRUGS (1)
  1. TYSABRI [Suspect]
     Active Substance: NATALIZUMAB
     Indication: Multiple sclerosis
     Route: 050
     Dates: start: 20221006

REACTIONS (1)
  - Seizure [Not Recovered/Not Resolved]
